FAERS Safety Report 21325539 (Version 1)
Quarter: 2022Q3

REPORT INFORMATION
  Report Type: Spontaneous
  Country: US (occurrence: US)
  Receive Date: 20220912
  Receipt Date: 20220912
  Transmission Date: 20221027
  Serious: No
  Sender: FDA-Public Use
  Company Number: US-BIOMARINAP-US-2022-145336

PATIENT

DRUGS (1)
  1. KUVAN [Suspect]
     Active Substance: SAPROPTERIN DIHYDROCHLORIDE
     Indication: Phenylketonuria
     Dosage: 600 MILLIGRAM, QD
     Route: 048
     Dates: start: 20220829

REACTIONS (3)
  - Aggression [Unknown]
  - Stereotypy [Unknown]
  - Eating disorder [Unknown]

NARRATIVE: CASE EVENT DATE: 20220831
